FAERS Safety Report 12552572 (Version 1)
Quarter: 2016Q3

REPORT INFORMATION
  Report Type: Spontaneous
  Country: DE (occurrence: DE)
  Receive Date: 20160713
  Receipt Date: 20160713
  Transmission Date: 20161109
  Serious: Yes (Hospitalization)
  Sender: FDA-Public Use
  Company Number: DE-CONCORDIA PHARMACEUTICALS INC.-CO-PL-DE-2016-377

PATIENT
  Age: 58 Year
  Sex: Female

DRUGS (3)
  1. HYDROXYCHLOROQUINE SULFATE. [Suspect]
     Active Substance: HYDROXYCHLOROQUINE SULFATE
     Indication: SYSTEMIC SCLERODERMA
  2. SILDENAFIL. [Concomitant]
     Active Substance: SILDENAFIL
     Indication: PRODUCT USED FOR UNKNOWN INDICATION
  3. ILOPROST [Concomitant]
     Active Substance: ILOPROST
     Indication: PRODUCT USED FOR UNKNOWN INDICATION

REACTIONS (8)
  - N-terminal prohormone brain natriuretic peptide increased [None]
  - Fibrosis [None]
  - Dyspnoea [None]
  - Cardiomyopathy [Unknown]
  - Left ventricular hypertrophy [None]
  - Ejection fraction decreased [Unknown]
  - Peripheral swelling [None]
  - Left ventricular end-diastolic pressure increased [None]
